FAERS Safety Report 8457676-1 (Version None)
Quarter: 2012Q2

REPORT INFORMATION
  Report Type: 
  Country: None (occurrence: None)
  Receive Date: 20120618
  Receipt Date: 20120618
  Transmission Date: 20120825
  Serious: No
  Sender: FDA-Public Use
  Company Number: None

PATIENT
  Sex: Female
  Weight: 90.7194 kg

DRUGS (1)
  1. MELOXICAM [Suspect]
     Dosage: 1 1 DAILY

REACTIONS (5)
  - ASTHENIA [None]
  - HEADACHE [None]
  - FATIGUE [None]
  - DIZZINESS [None]
  - DIARRHOEA [None]
